FAERS Safety Report 10357594 (Version 2)
Quarter: 2014Q3

REPORT INFORMATION
  Report Type: Report from Study
  Country: KR (occurrence: KR)
  Receive Date: 20140801
  Receipt Date: 20140801
  Transmission Date: 20150326
  Serious: Yes (Hospitalization)
  Sender: FDA-Public Use
  Company Number: KR-B.I. PHARMACEUTICALS,INC./RIDGEFIELD-2013-CS-00111CS

PATIENT
  Age: 74 Year
  Sex: Male
  Weight: 71.8 kg

DRUGS (2)
  1. AFATINIB [Suspect]
     Active Substance: AFATINIB
     Dosage: 40 MG
     Route: 048
     Dates: start: 20130118, end: 20130119
  2. AFATINIB [Suspect]
     Active Substance: AFATINIB
     Indication: NON-SMALL CELL LUNG CANCER
     Dosage: 50 MG
     Route: 048
     Dates: start: 20130103, end: 20130117

REACTIONS (2)
  - Stevens-Johnson syndrome [Recovered/Resolved]
  - Diarrhoea [Recovered/Resolved]

NARRATIVE: CASE EVENT DATE: 20130117
